FAERS Safety Report 25649540 (Version 2)
Quarter: 2025Q3

REPORT INFORMATION
  Report Type: Spontaneous
  Country: CA (occurrence: CA)
  Receive Date: 20250806
  Receipt Date: 20250814
  Transmission Date: 20251021
  Serious: Yes (Other)
  Sender: CELLTRION
  Company Number: CA-PFIZER INC-202500153432

PATIENT

DRUGS (20)
  1. INFLECTRA [Suspect]
     Active Substance: INFLIXIMAB-DYYB
     Indication: Colitis ulcerative
     Dates: start: 20250605
  2. INFLECTRA [Suspect]
     Active Substance: INFLIXIMAB-DYYB
     Dates: start: 20250605
  3. CRESTOR [Concomitant]
     Active Substance: ROSUVASTATIN CALCIUM
  4. DOCONEXENT\ICOSAPENT [Concomitant]
     Active Substance: DOCONEXENT\ICOSAPENT
  5. TYLENOL ARTHRITIS PAIN [Concomitant]
     Active Substance: ACETAMINOPHEN
  6. ERGOCALCIFEROL [Concomitant]
     Active Substance: ERGOCALCIFEROL
  7. METHOTREXATE [Concomitant]
     Active Substance: METHOTREXATE
  8. FOLIC ACID [Concomitant]
     Active Substance: FOLIC ACID
  9. ZOPICLONE [Concomitant]
     Active Substance: ZOPICLONE
  10. DESLORATADINE [Concomitant]
     Active Substance: DESLORATADINE
  11. SITAGLIPTIN [Concomitant]
     Active Substance: SITAGLIPTIN
  12. AMLODIPINE [Concomitant]
     Active Substance: AMLODIPINE BESYLATE
  13. VITALUX [CALCIUM PANTOTHENATE;CYANOCOBALAMIN;NICOTINAMIDE;PYRIDOXINE H [Concomitant]
  14. IRBESARTAN [Concomitant]
     Active Substance: IRBESARTAN
  15. TRESIBA [Concomitant]
     Active Substance: INSULIN DEGLUDEC
  16. VAGIFEM [Concomitant]
     Active Substance: ESTRADIOL
  17. ALBUTEROL [Concomitant]
     Active Substance: ALBUTEROL
  18. ATROVENT [Concomitant]
     Active Substance: IPRATROPIUM BROMIDE
  19. FLUTICASONE [Concomitant]
     Active Substance: FLUTICASONE
  20. SERTRALINE [Concomitant]
     Active Substance: SERTRALINE HYDROCHLORIDE

REACTIONS (1)
  - Pancreatic carcinoma [Unknown]

NARRATIVE: CASE EVENT DATE: 20250101
